FAERS Safety Report 19311307 (Version 1)
Quarter: 2021Q2

REPORT INFORMATION
  Report Type: Spontaneous
  Country: IT (occurrence: IT)
  Receive Date: 20210527
  Receipt Date: 20210527
  Transmission Date: 20210717
  Serious: Yes (Other)
  Sender: FDA-Public Use
  Company Number: IT-AUROBINDO-AUR-APL-2021-020001

PATIENT
  Age: 17 Year
  Sex: Male

DRUGS (2)
  1. AMOXICILLIN+CLAVULANIC ACID [Suspect]
     Active Substance: AMOXICILLIN\CLAVULANIC ACID
     Indication: INFECTIOUS MONONUCLEOSIS
     Dosage: 2 DOSAGE FORM, ONCE A DAY
     Route: 048
  2. FOSFOMYCIN [Suspect]
     Active Substance: FOSFOMYCIN
     Indication: INFECTIOUS MONONUCLEOSIS
     Dosage: 1 DOSAGE FORM, TOTAL
     Route: 048

REACTIONS (4)
  - Toxic skin eruption [Recovering/Resolving]
  - Skin reaction [Recovering/Resolving]
  - Rash [Recovering/Resolving]
  - Drug hypersensitivity [Recovering/Resolving]

NARRATIVE: CASE EVENT DATE: 20210311
